FAERS Safety Report 13918214 (Version 1)
Quarter: 2017Q3

REPORT INFORMATION
  Report Type: Spontaneous
  Country: US (occurrence: US)
  Receive Date: 20170829
  Receipt Date: 20170829
  Transmission Date: 20171127
  Serious: No
  Sender: FDA-Public Use
  Company Number: US-SA-2017SA038769

PATIENT
  Age: 67 Year
  Sex: Female
  Weight: 133.35 kg

DRUGS (21)
  1. ATORVASTATIN [Concomitant]
     Active Substance: ATORVASTATIN
     Route: 048
     Dates: start: 20170118
  2. METOPROLOL. [Concomitant]
     Active Substance: METOPROLOL
     Route: 048
     Dates: start: 20170118
  3. BENADRYL [Concomitant]
     Active Substance: DIPHENHYDRAMINE HYDROCHLORIDE
     Dosage: EVERY 6HS AS NEEDED
     Route: 048
     Dates: start: 20170118
  4. DILTIAZEM. [Concomitant]
     Active Substance: DILTIAZEM
     Route: 048
     Dates: start: 20170118
  5. ASPIRIN. [Concomitant]
     Active Substance: ASPIRIN
     Route: 048
     Dates: start: 20170118
  6. AUGMENTIN [Concomitant]
     Active Substance: AMOXICILLIN\CLAVULANATE POTASSIUM
     Route: 048
     Dates: start: 20170209
  7. FUROSEMIDE. [Concomitant]
     Active Substance: FUROSEMIDE
     Route: 048
     Dates: start: 20170118
  8. LANTUS [Concomitant]
     Active Substance: INSULIN GLARGINE
     Dosage: DOSE:76 UNIT(S)
     Route: 042
     Dates: start: 20170118
  9. GEMFIBROZIL. [Concomitant]
     Active Substance: GEMFIBROZIL
     Route: 048
     Dates: start: 20170118
  10. ISOSORBIDE. [Concomitant]
     Active Substance: ISOSORBIDE
     Route: 048
     Dates: start: 20170118
  11. METAMUCIL [Concomitant]
     Active Substance: PLANTAGO SEED
     Route: 048
     Dates: start: 20170118
  12. FABRAZYME [Suspect]
     Active Substance: AGALSIDASE BETA
     Indication: LIPIDOSIS
     Route: 041
  13. DOCUSATE [Concomitant]
     Active Substance: DOCUSATE
     Route: 048
     Dates: start: 20170118
  14. DIFLUCAN [Concomitant]
     Active Substance: FLUCONAZOLE
     Route: 048
     Dates: start: 20170118
  15. PANTHENOL/RETINOL/THIAMINE HYDROCHLORIDE/ASCORBIC ACID/ERGOCALCIFEROL/FOLIC ACID/RIBOFLAVIN/NICOTINA [Concomitant]
     Route: 048
     Dates: start: 20170118
  16. RANEXA [Concomitant]
     Active Substance: RANOLAZINE
     Route: 048
     Dates: start: 20170118
  17. HUMALOG [Concomitant]
     Active Substance: INSULIN LISPRO
     Dosage: DOSE:6 UNIT(S)
     Route: 042
     Dates: start: 20170118
  18. FAMOTIDINE. [Concomitant]
     Active Substance: FAMOTIDINE
     Route: 048
     Dates: start: 20170118
  19. MECLIZINE [Concomitant]
     Active Substance: MECLIZINE HYDROCHLORIDE
     Route: 048
     Dates: start: 20170118
  20. ALEVE [Concomitant]
     Active Substance: NAPROXEN SODIUM
     Dosage: AS NEEDED
     Route: 048
     Dates: start: 20170118
  21. PHENYLEPHRINE [Concomitant]
     Active Substance: PHENYLEPHRINE\PHENYLEPHRINE HYDROCHLORIDE
     Dates: start: 20170118

REACTIONS (1)
  - Urinary tract infection [Unknown]
